FAERS Safety Report 25595898 (Version 3)
Quarter: 2025Q3

REPORT INFORMATION
  Report Type: Spontaneous
  Country: US (occurrence: US)
  Receive Date: 20250723
  Receipt Date: 20250924
  Transmission Date: 20251021
  Serious: No
  Sender: BLUEPRINT MEDICINES
  Company Number: US-Blueprint Medicines Corporation-2025-AER-01570

PATIENT
  Age: 80 Year
  Sex: Female

DRUGS (2)
  1. AYVAKIT [Suspect]
     Active Substance: AVAPRITINIB
     Indication: Myelodysplastic syndrome
     Route: 065
     Dates: start: 20250612
  2. AYVAKIT [Suspect]
     Active Substance: AVAPRITINIB
     Route: 065
     Dates: start: 20250612

REACTIONS (11)
  - Nausea [Unknown]
  - Faeces soft [Unknown]
  - Fatigue [Unknown]
  - Malaise [Unknown]
  - Abdominal discomfort [Unknown]
  - Constipation [Unknown]
  - Decreased appetite [Unknown]
  - Alopecia [Unknown]
  - Diarrhoea [Unknown]
  - Gastrointestinal disorder [Unknown]
  - Off label use [Unknown]
